FAERS Safety Report 5467345-8 (Version None)
Quarter: 2007Q3

REPORT INFORMATION
  Report Type: 
  Country: None (occurrence: None)
  Receive Date: 20070925
  Receipt Date: 20070830
  Transmission Date: 20080115
  Serious: Yes (Hospitalization)
  Sender: FDA-Public Use
  Company Number: PHHO2007IL15386

PATIENT
  Age: 21 Year
  Sex: Male
  Weight: 54 kg

DRUGS (2)
  1. COMPARATOR PEGASYS [Suspect]
     Indication: HEPATITIS B
     Dosage: 180 MCG
     Route: 058
     Dates: start: 20070426, end: 20070822
  2. TELBIVUDINE [Suspect]
     Indication: HEPATITIS B
     Dosage: 600 MG,
     Route: 048
     Dates: start: 20070426, end: 20070822

REACTIONS (1)
  - POLYNEUROPATHY [None]
